FAERS Safety Report 9010088 (Version 1)
Quarter: 2013Q1

REPORT INFORMATION
  Report Type: Spontaneous
  Country: FR (occurrence: FR)
  Receive Date: 20130110
  Receipt Date: 20130110
  Transmission Date: 20140127
  Serious: Yes (Hospitalization, Other)
  Sender: FDA-Public Use
  Company Number: FR-BRISTOL-MYERS SQUIBB COMPANY-17267063

PATIENT
  Age: 74 Year
  Sex: Female

DRUGS (2)
  1. COUMADINE [Suspect]
     Indication: ARRHYTHMIA
     Route: 048
  2. COUMADINE [Suspect]
     Indication: ATRIAL FIBRILLATION
     Route: 048

REACTIONS (6)
  - Overdose [Not Recovered/Not Resolved]
  - International normalised ratio increased [Not Recovered/Not Resolved]
  - Wound haemorrhage [Not Recovered/Not Resolved]
  - Haematoma [Not Recovered/Not Resolved]
  - Anaemia [Not Recovered/Not Resolved]
  - Renal failure [Not Recovered/Not Resolved]
